FAERS Safety Report 8909520 (Version 2)
Quarter: 2012Q4

REPORT INFORMATION
  Report Type: 
  Country: US (occurrence: US)
  Receive Date: 20121115
  Receipt Date: 20121119
  Transmission Date: 20130627
  Serious: Yes (Hospitalization)
  Sender: FDA-Public Use
  Company Number: US-BAYER-2012-116716

PATIENT
  Age: 36 Year
  Sex: Female

DRUGS (6)
  1. YAZ [Suspect]
  2. YASMIN [Suspect]
     Indication: MENSTRUAL MIGRAINE
  3. SYNTHROID [Concomitant]
  4. ATENOLOL [Concomitant]
     Indication: HEADACHE
  5. MULTIVITAMINS [Concomitant]
  6. CALCIUM [Concomitant]

REACTIONS (3)
  - Deep vein thrombosis [None]
  - Pelvic venous thrombosis [None]
  - Off label use [None]
